FAERS Safety Report 4451236-5 (Version None)
Quarter: 2004Q3

REPORT INFORMATION
  Report Type: 
  Country: None (occurrence: None)
  Receive Date: 20040915
  Receipt Date: 20040915
  Transmission Date: 20050211
  Serious: Yes (Hospitalization)
  Sender: FDA-Public Use
  Company Number: None

PATIENT
  Age: 77 Year
  Sex: Male
  Weight: 91 kg

DRUGS (21)
  1. LASIX [Suspect]
     Indication: CARDIAC FAILURE CONGESTIVE
     Dosage: 40 MG BID ORALLY
     Route: 048
     Dates: start: 20040618, end: 20040625
  2. ASCORBIC ACID [Concomitant]
  3. ATENOLOL [Concomitant]
  4. LIPITOR [Concomitant]
  5. CLOBETASOL [Concomitant]
  6. LEXAPRO [Concomitant]
  7. FOLIC ACID [Concomitant]
  8. MICONAZOLE [Concomitant]
  9. PREDNISONE [Concomitant]
  10. NITROGLYCERIN [Concomitant]
  11. SEROQUEL [Concomitant]
  12. PROTONIX [Concomitant]
  13. ZINC [Concomitant]
  14. CELEBREX [Concomitant]
  15. LOMOTIL [Concomitant]
  16. DIOVAN [Concomitant]
  17. OXYCODONE HCL [Concomitant]
  18. VANCOMYCIN [Concomitant]
  19. WARFARIN SODIUM [Concomitant]
  20. LEVACIN [Concomitant]
  21. UNASYN [Concomitant]

REACTIONS (2)
  - PEMPHIGOID [None]
  - RASH [None]
